FAERS Safety Report 16357539 (Version 1)
Quarter: 2019Q2

REPORT INFORMATION
  Report Type: Spontaneous
  Country: US (occurrence: US)
  Receive Date: 20190527
  Receipt Date: 20190527
  Transmission Date: 20190711
  Serious: No
  Sender: FDA-Public Use
  Company Number: US-BEH-2019102795

PATIENT
  Age: 63 Year
  Sex: Female

DRUGS (4)
  1. EYLEA [Concomitant]
     Active Substance: AFLIBERCEPT
     Dosage: 2 MG/0.05 ML, UNK
     Route: 065
  2. CLINDAMYCIN HCL [Concomitant]
     Active Substance: CLINDAMYCIN HYDROCHLORIDE
  3. HIZENTRA [Suspect]
     Active Substance: HUMAN IMMUNOGLOBULIN G
     Indication: IMMUNODEFICIENCY COMMON VARIABLE
     Dosage: 20 G, QW
     Route: 058
  4. LEVOTHYROXIN [Concomitant]
     Active Substance: LEVOTHYROXINE
     Dosage: 500 ?G, UNK
     Route: 065

REACTIONS (3)
  - Infusion site erythema [Recovered/Resolved]
  - Fatigue [Recovered/Resolved]
  - Sinusitis [Recovered/Resolved]

NARRATIVE: CASE EVENT DATE: 201905
